FAERS Safety Report 7581679-2 (Version None)
Quarter: 2011Q2

REPORT INFORMATION
  Report Type: 
  Country: None (occurrence: None)
  Receive Date: 20110629
  Receipt Date: 20110623
  Transmission Date: 20111010
  Serious: Yes (Hospitalization)
  Sender: FDA-Public Use
  Company Number: US-B.I. PHARMACEUTICALS,INC./RIDGEFIELD-2011-BP-16144BP

PATIENT
  Sex: Male

DRUGS (13)
  1. FUROSEMIDE [Concomitant]
     Indication: ARRHYTHMIA
     Dosage: 60 MG
     Route: 048
  2. POTASSIUM [Concomitant]
     Indication: ROUTINE HEALTH MAINTENANCE
     Dosage: 10 MEQ
     Route: 048
  3. FERROUS SULFATE TAB [Concomitant]
     Indication: ROUTINE HEALTH MAINTENANCE
     Dosage: 325 MG
     Route: 048
     Dates: start: 20110514
  4. ASPIRIN [Concomitant]
     Indication: ROUTINE HEALTH MAINTENANCE
     Dosage: 81 MG
     Route: 048
     Dates: start: 20040101, end: 20110501
  5. TERAZOSIN HCL [Concomitant]
     Indication: HYPERTENSION
     Dosage: 2 MG
     Route: 048
     Dates: start: 20110514
  6. COUMADIN [Concomitant]
     Indication: CARDIAC DISORDER
     Dosage: 2.5 MG
     Route: 048
     Dates: start: 20110514
  7. PRADAXA [Suspect]
     Indication: AORTIC SURGERY
     Dosage: 300 MG
     Route: 048
     Dates: start: 20110101, end: 20110513
  8. PRADAXA [Suspect]
     Indication: MITRAL VALVE DISEASE
  9. ALLOPURINOL [Concomitant]
     Indication: GOUT
     Dosage: 300 MG
     Route: 048
  10. PROTONIX [Concomitant]
     Indication: GASTROINTESTINAL HAEMORRHAGE
     Dosage: 40 MG
     Route: 048
  11. TOPROL-XL [Concomitant]
     Indication: HYPERTENSION
     Dosage: 25 MG
     Route: 048
  12. BENICAR [Concomitant]
     Indication: HYPERTENSION
     Dosage: 20 MG
     Route: 048
     Dates: start: 20110514
  13. ZOCOR [Concomitant]
     Indication: BLOOD CHOLESTEROL INCREASED
     Dosage: 40 MG
     Route: 048
     Dates: start: 20110514

REACTIONS (1)
  - GASTROINTESTINAL HAEMORRHAGE [None]
